FAERS Safety Report 9269714 (Version 2)
Quarter: 2013Q4

REPORT INFORMATION
  Report Type: Spontaneous
  Country: GB (occurrence: GB)
  Receive Date: 20130503
  Receipt Date: 20131022
  Transmission Date: 20140711
  Serious: Yes (Other)
  Sender: FDA-Public Use
  Company Number: GB-PFIZER INC-2013130933

PATIENT
  Age: 27 Year
  Sex: Male
  Weight: 64 kg

DRUGS (6)
  1. IBUPROFEN [Suspect]
     Indication: BACK PAIN
     Dosage: UNK
  2. IBUPROFEN [Suspect]
     Indication: BACK PAIN
  3. NAPROXEN SODIUM [Suspect]
     Indication: BACK PAIN
     Dosage: 500 MG, 2X/DAY
  4. LAMOTRIGINE [Concomitant]
     Indication: EPILEPSY
     Dosage: 125 MG, UNK
     Dates: start: 201209
  5. OXYCONTIN [Concomitant]
     Dosage: UNK
     Dates: start: 201209
  6. OXYNORM [Concomitant]
     Dates: start: 201209

REACTIONS (5)
  - Epilepsy [Recovered/Resolved]
  - Feeling abnormal [Recovered/Resolved]
  - Balance disorder [Recovered/Resolved]
  - Tremor [Recovered/Resolved]
  - Chills [Recovered/Resolved]
